FAERS Safety Report 14376887 (Version 1)
Quarter: 2018Q1

REPORT INFORMATION
  Report Type: Spontaneous
  Country: US (occurrence: US)
  Receive Date: 20180111
  Receipt Date: 20180111
  Transmission Date: 20180509
  Serious: No
  Sender: FDA-Public Use
  Company Number: US-DRREDDYS-USA/USA/17/0087796

PATIENT
  Sex: Female
  Weight: 83.9 kg

DRUGS (3)
  1. HABITROL [Suspect]
     Active Substance: NICOTINE
     Indication: SMOKING CESSATION THERAPY
     Route: 062
     Dates: start: 201702
  2. HABITROL [Suspect]
     Active Substance: NICOTINE
     Dosage: 1 WEEK AGO
     Route: 062
  3. TRAMADOL. [Concomitant]
     Active Substance: TRAMADOL
     Indication: PRODUCT USED FOR UNKNOWN INDICATION
     Route: 065

REACTIONS (10)
  - Dry throat [Recovered/Resolved]
  - Application site pruritus [Recovered/Resolved]
  - Treatment noncompliance [Unknown]
  - Throat irritation [Recovered/Resolved]
  - Constipation [Recovered/Resolved]
  - Headache [Not Recovered/Not Resolved]
  - Anxiety [Recovered/Resolved]
  - Insomnia [Unknown]
  - Productive cough [Recovered/Resolved]
  - Drug dose omission [Unknown]
